FAERS Safety Report 7535847-6 (Version None)
Quarter: 2011Q2

REPORT INFORMATION
  Report Type: 
  Country: None (occurrence: None)
  Receive Date: 20110609
  Receipt Date: 20110524
  Transmission Date: 20111010
  Serious: Yes (Hospitalization)
  Sender: FDA-Public Use
  Company Number: US-BAYER-201021421NA

PATIENT
  Age: 16 Year
  Sex: Female
  Weight: 59 kg

DRUGS (5)
  1. HYOSCYAMINE [Concomitant]
     Dosage: 0.125 MG, UNK
     Route: 060
     Dates: start: 20080418
  2. YAZ [Suspect]
     Indication: ACNE
     Dosage: UNK
     Route: 048
     Dates: start: 20060101, end: 20100101
  3. YAZ [Suspect]
  4. BENZACLIN [Concomitant]
     Dosage: 50 G, UNK
     Route: 061
     Dates: start: 20080324
  5. YAZ [Suspect]
     Indication: PREMENSTRUAL SYNDROME

REACTIONS (3)
  - CHOLECYSTITIS [None]
  - ABDOMINAL PAIN UPPER [None]
  - CHOLECYSTITIS CHRONIC [None]
